FAERS Safety Report 12093399 (Version 1)
Quarter: 2016Q1

REPORT INFORMATION
  Report Type: Spontaneous
  Country: ES (occurrence: None)
  Receive Date: 20160216
  Receipt Date: 20160216
  Transmission Date: 20160526
  Serious: Yes (Disabling)
  Sender: FDA-Public Use
  Company Number: ES-ALSI-201600028

PATIENT
  Age: 59 Year
  Sex: Male

DRUGS (1)
  1. OXYGEN. [Suspect]
     Active Substance: OXYGEN

REACTIONS (6)
  - Limb crushing injury [None]
  - Device fastener issue [None]
  - Accidental exposure to product [None]
  - Product quality issue [None]
  - Impaired work ability [None]
  - Injury associated with device [None]

NARRATIVE: CASE EVENT DATE: 20150321
